FAERS Safety Report 16386952 (Version 1)
Quarter: 2019Q2

REPORT INFORMATION
  Report Type: Spontaneous
  Country: GB (occurrence: GB)
  Receive Date: 20190604
  Receipt Date: 20190604
  Transmission Date: 20190711
  Serious: Yes (Other)
  Sender: FDA-Public Use
  Company Number: GB-BRISTOL-MYERS SQUIBB COMPANY-BMS-2019-050083

PATIENT
  Age: 63 Year
  Sex: Female

DRUGS (2)
  1. WARFARIN SODIUM. [Suspect]
     Active Substance: WARFARIN SODIUM
     Indication: PRODUCT USED FOR UNKNOWN INDICATION
     Dosage: UNK
     Route: 065
  2. DIPRIDAMOLE [Suspect]
     Active Substance: DIPYRIDAMOLE
     Indication: PRODUCT USED FOR UNKNOWN INDICATION
     Dosage: UNK
     Route: 065

REACTIONS (1)
  - Transient ischaemic attack [Unknown]
